FAERS Safety Report 22340814 (Version 1)
Quarter: 2023Q2

REPORT INFORMATION
  Report Type: Spontaneous
  Country: FI (occurrence: FI)
  Receive Date: 20230518
  Receipt Date: 20230518
  Transmission Date: 20230722
  Serious: Yes (Hospitalization)
  Sender: FDA-Public Use
  Company Number: None

PATIENT
  Age: 73 Year
  Sex: Male

DRUGS (3)
  1. SILDENAFIL [Suspect]
     Active Substance: SILDENAFIL
     Indication: Erectile dysfunction
     Dosage: 100 MILLIGRAM, PRN (100,MG,AS NECESSARY)
     Route: 048
  2. TADALAFIL [Concomitant]
     Active Substance: TADALAFIL
     Indication: Erectile dysfunction
     Dosage: 20 MILLIGRAM, PRN (20,MG,AS NECESSARY)
     Route: 048
  3. LOSARTAN/HYDROCHLORTHIAZID ORION [Concomitant]
     Indication: Hypertension
     Dosage: UNK
     Route: 048

REACTIONS (4)
  - Shoulder fracture [Recovering/Resolving]
  - Partial seizures [Recovering/Resolving]
  - Joint dislocation [Recovering/Resolving]
  - Dizziness [Recovering/Resolving]

NARRATIVE: CASE EVENT DATE: 20221128
